FAERS Safety Report 5561817-3 (Version None)
Quarter: 2007Q4

REPORT INFORMATION
  Report Type: 
  Country: None (occurrence: None)
  Receive Date: 20071215
  Receipt Date: 20071009
  Transmission Date: 20080405
  Serious: No
  Sender: FDA-Public Use
  Company Number: US-AMGEN-KDL245492

PATIENT
  Sex: Male
  Weight: 115.8 kg

DRUGS (4)
  1. ENBREL [Suspect]
     Indication: RHEUMATOID ARTHRITIS
     Route: 058
     Dates: start: 20070131, end: 20070911
  2. LISINOPRIL [Concomitant]
  3. HYDROCHLOROTHIAZIDE [Concomitant]
  4. NORVASC [Concomitant]

REACTIONS (3)
  - ALOPECIA [None]
  - PSORIASIS [None]
  - RHEUMATOID ARTHRITIS [None]
